FAERS Safety Report 4437779-9 (Version None)
Quarter: 2004Q3

REPORT INFORMATION
  Report Type: 
  Country: None (occurrence: None)
  Receive Date: 20040827
  Receipt Date: 20040811
  Transmission Date: 20050211
  Serious: Yes (Hospitalization)
  Sender: FDA-Public Use
  Company Number: 2004-03586

PATIENT
  Age: 39 Year
  Sex: Female

DRUGS (4)
  1. PRIMIDONE [Suspect]
     Indication: COMPLEX PARTIAL SEIZURES
     Dosage: ORAL
     Route: 048
     Dates: end: 20040501
  2. PRIMIDONE [Suspect]
     Indication: CONVULSION
     Dosage: ORAL
     Route: 048
     Dates: end: 20040501
  3. VALPROATE SODIUM [Suspect]
     Indication: COMPLEX PARTIAL SEIZURES
     Dosage: ORAL
     Route: 048
     Dates: end: 20040501
  4. VALPROATE SODIUM [Suspect]
     Indication: CONVULSION
     Dosage: ORAL
     Route: 048
     Dates: end: 20040501

REACTIONS (1)
  - PORPHYRIA NON-ACUTE [None]
